FAERS Safety Report 21316074 (Version 3)
Quarter: 2022Q4

REPORT INFORMATION
  Report Type: Report from Study
  Country: CN (occurrence: None)
  Receive Date: 20220910
  Receipt Date: 20221123
  Transmission Date: 20230112
  Serious: Yes (Hospitalization)
  Sender: FDA-Public Use
  Company Number: CN-ROCHE-3174851

PATIENT
  Age: 58 Year
  Sex: Male
  Weight: 72 kg

DRUGS (11)
  1. ATEZOLIZUMAB [Suspect]
     Active Substance: ATEZOLIZUMAB
     Indication: Hepatocellular carcinoma
     Dosage: DATE OF MOST RECENT DOSE OF ATEZOLIZUMAB PRIOR TO ONSET OF AE :11/AUG/2022?DATE OF MOST RECENT DOSE
     Route: 041
     Dates: start: 20220412, end: 20220908
  2. BEVACIZUMAB [Suspect]
     Active Substance: BEVACIZUMAB
     Indication: Hepatocellular carcinoma
     Dosage: DATE OF MOST RECENT DOSE OF BEVACIZUMAB PRIOR TO ONSET OF AE :11/AUG/2022?DATE OF MOST RECENT DOSE O
     Route: 041
     Dates: start: 20220412, end: 20220908
  3. PIRARUBICIN [Suspect]
     Active Substance: PIRARUBICIN
     Indication: Hepatocellular carcinoma
     Route: 065
  4. ENTECAVIR [Concomitant]
     Active Substance: ENTECAVIR
     Dosage: TOTAL DAILY DOSE:0.5MG
     Dates: start: 20220308
  5. TENOFOVIR ALAFENAMIDE FUMARATE [Concomitant]
     Active Substance: TENOFOVIR ALAFENAMIDE FUMARATE
     Dosage: TOTAL DAILY DOSE:25MG
     Dates: start: 20220317
  6. HERBALS\DIAMMONIUM GLYCYRRHIZINATE [Concomitant]
     Active Substance: HERBALS\DIAMMONIUM GLYCYRRHIZINATE
     Dosage: TOTAL DAILY DOSE:150MG?ENTERIC COATED CAPSULES
     Dates: start: 20220406
  7. POTASSIUM CITRATE [Concomitant]
     Active Substance: POTASSIUM CITRATE
     Dosage: TOTAL DAILY DOSE:1 OTHER
     Dates: start: 20220610
  8. PANTOPRAZOLE SODIUM [Concomitant]
     Active Substance: PANTOPRAZOLE SODIUM
     Dosage: TOTAL DAILY DOSE:40MG?ENTERIC COATED TABLETS
     Dates: start: 20220712
  9. HYDROTALCITE [Concomitant]
     Active Substance: HYDROTALCITE
     Dosage: TOTAL DAILY DOSE:1 G
     Dates: start: 20220718
  10. MOSAPRIDE CITRATE [Concomitant]
     Active Substance: MOSAPRIDE CITRATE
     Dosage: TOTAL DAILY DOSE:5MG
     Dates: start: 20220718
  11. AMLODIPINE BESYLATE [Concomitant]
     Active Substance: AMLODIPINE BESYLATE
     Dosage: TOTAL DAILY DOSE:5MG
     Dates: start: 20220807

REACTIONS (2)
  - Cyst [Recovering/Resolving]
  - Jaundice cholestatic [Not Recovered/Not Resolved]

NARRATIVE: CASE EVENT DATE: 20220905
